FAERS Safety Report 19276706 (Version 1)
Quarter: 2021Q2

REPORT INFORMATION
  Report Type: Spontaneous
  Country: GB (occurrence: GB)
  Receive Date: 20210519
  Receipt Date: 20210519
  Transmission Date: 20210717
  Serious: Yes (Hospitalization, Other)
  Sender: FDA-Public Use
  Company Number: GB-ANIPHARMA-2021-UK-000152

PATIENT
  Age: 56 Year
  Sex: Male
  Weight: 88 kg

DRUGS (10)
  1. AG PANTOPRAZOLE [Suspect]
     Active Substance: PANTOPRAZOLE SODIUM
     Dosage: UNKNOWN DOSE DAILY
     Route: 065
  2. ACETYLSALICYLIC ACID [Suspect]
     Active Substance: ASPIRIN
     Dosage: UNKNOWN DOSE DAILY
     Route: 065
  3. CANDESARTAN CILEXETIL. [Suspect]
     Active Substance: CANDESARTAN CILEXETIL
     Indication: PRODUCT USED FOR UNKNOWN INDICATION
     Dosage: UNKNOWN DOSE DAILY
     Route: 048
  4. COLECALCIFEROL [Suspect]
     Active Substance: CHOLECALCIFEROL
     Dosage: UNKNOWN DOSE ONCE A WEEK (EVERY SUNDAY)
     Route: 065
  5. ATORVASTATIN [Suspect]
     Active Substance: ATORVASTATIN
     Dosage: UNKNOWN DOSE DAILY
     Route: 065
  6. GILENYA [Suspect]
     Active Substance: FINGOLIMOD HYDROCHLORIDE
     Dosage: UNKNOWN DOSE DAILY
     Route: 065
     Dates: end: 202009
  7. BISOPROLOL [Suspect]
     Active Substance: BISOPROLOL
     Dosage: UNKNOWN DOSE TWO TIMES DAILY
     Route: 065
  8. DULOXETINE. [Suspect]
     Active Substance: DULOXETINE
     Dosage: UNKNOWN DOSE DAILY
     Route: 065
  9. PRASUGREL. [Suspect]
     Active Substance: PRASUGREL
     Dosage: UNKNOWN DOSE DAILY
     Route: 065
  10. METFORMIN [Suspect]
     Active Substance: METFORMIN HYDROCHLORIDE
     Dosage: UNKNOWN DOSE TWO TIMES DAILY
     Route: 065

REACTIONS (16)
  - Nausea [Unknown]
  - Obesity [Unknown]
  - Coronary artery disease [Unknown]
  - Chest discomfort [Unknown]
  - Hypercholesterolaemia [Unknown]
  - Polyuria [Unknown]
  - Type 2 diabetes mellitus [Unknown]
  - Coronary artery stenosis [Unknown]
  - Acute myocardial infarction [Unknown]
  - Angina pectoris [Unknown]
  - Hypertension [Unknown]
  - Lipid metabolism disorder [Unknown]
  - Pain [Unknown]
  - Abdominal pain upper [Unknown]
  - Coronary artery occlusion [Unknown]
  - Hyperhidrosis [Unknown]

NARRATIVE: CASE EVENT DATE: 20200921
